FAERS Safety Report 10353217 (Version 1)
Quarter: 2014Q3

REPORT INFORMATION
  Report Type: Spontaneous
  Country: US (occurrence: US)
  Receive Date: 20140730
  Receipt Date: 20140730
  Transmission Date: 20150326
  Serious: No
  Sender: FDA-Public Use
  Company Number: US-009507513-1407USA011558

PATIENT
  Sex: Female

DRUGS (3)
  1. PROVENTIL [Suspect]
     Active Substance: ALBUTEROL
     Indication: CHRONIC OBSTRUCTIVE PULMONARY DISEASE
     Dosage: 90 MCG 1 STANDARD DOSE OF 6.7, AS NEEDED
     Route: 055
  2. PROVENTIL [Suspect]
     Active Substance: ALBUTEROL
     Indication: EMPHYSEMA
  3. IPRATROPIUM BROMIDE. [Concomitant]
     Active Substance: IPRATROPIUM BROMIDE

REACTIONS (6)
  - Drug dose omission [Unknown]
  - Product quality issue [Unknown]
  - Emphysema [Recovered/Resolved]
  - Chronic obstructive pulmonary disease [Recovered/Resolved]
  - Wrong technique in drug usage process [Unknown]
  - Dyspnoea [Recovered/Resolved]
